FAERS Safety Report 25045623 (Version 1)
Quarter: 2025Q1

REPORT INFORMATION
  Report Type: Spontaneous
  Country: US (occurrence: None)
  Receive Date: 20250305
  Receipt Date: 20250305
  Transmission Date: 20250409
  Serious: Yes (Other)
  Sender: FDA-CTU
  Company Number: None

PATIENT
  Age: 57 Year
  Sex: Female
  Weight: 117.4 kg

DRUGS (5)
  1. INFED [Suspect]
     Active Substance: IRON DEXTRAN
     Indication: Iron deficiency anaemia
     Route: 042
     Dates: start: 20250304, end: 20250304
  2. Atorvastatin 20 mg PO daily [Concomitant]
  3. Gabapentin 100 mg PO TID [Concomitant]
  4. Olmesartan 20 mg PO daily [Concomitant]
  5. Synthroid 125 mcg PO daily [Concomitant]

REACTIONS (4)
  - Chest pain [None]
  - Pain [None]
  - Pulmonary congestion [None]
  - Wheezing [None]

NARRATIVE: CASE EVENT DATE: 20250304
